FAERS Safety Report 6326756-9 (Version None)
Quarter: 2009Q3

REPORT INFORMATION
  Report Type: 
  Country: None (occurrence: None)
  Receive Date: 20090825
  Receipt Date: 20090817
  Transmission Date: 20100115
  Serious: Yes (Other)
  Sender: FDA-Public Use
  Company Number: US-ROCHE-645859

PATIENT
  Sex: Female
  Weight: 56.7 kg

DRUGS (1)
  1. BONIVA [Suspect]
     Indication: DRUG USE FOR UNKNOWN INDICATION
     Dosage: INDICATION REPORTED AS 733.00
     Route: 048
     Dates: start: 20060906, end: 20090729

REACTIONS (4)
  - RASH [None]
  - SKIN CANCER [None]
  - SKIN ULCER [None]
  - VISION BLURRED [None]
